FAERS Safety Report 5834842-2 (Version None)
Quarter: 2008Q3

REPORT INFORMATION
  Report Type: 
  Country: None (occurrence: None)
  Receive Date: 20080730
  Receipt Date: 20080325
  Transmission Date: 20090109
  Serious: Yes (Hospitalization)
  Sender: FDA-Public Use
  Company Number: 2008-US-000293

PATIENT
  Age: 4 Year
  Sex: Male
  Weight: 10.9 kg

DRUGS (5)
  1. INCRELEX [Suspect]
     Indication: INSULIN-LIKE GROWTH FACTOR DECREASED
     Dosage: 8 UNITS, BID, SUBCUTANEOUS, 12 UNITS, BID, SUBCUTANEOUS
     Route: 058
     Dates: start: 20070801, end: 20080323
  2. INCRELEX [Suspect]
     Indication: INSULIN-LIKE GROWTH FACTOR DECREASED
     Dosage: 8 UNITS, BID, SUBCUTANEOUS, 12 UNITS, BID, SUBCUTANEOUS
     Route: 058
     Dates: start: 20080323, end: 20080325
  3. PREVACID [Concomitant]
  4. LACTULOSE [Concomitant]
  5. .. [Concomitant]

REACTIONS (4)
  - DYSPNOEA [None]
  - GENERALISED ERYTHEMA [None]
  - PRURITUS [None]
  - URTICARIA [None]
